FAERS Safety Report 9541912 (Version 3)
Quarter: 2013Q4

REPORT INFORMATION
  Report Type: Report from Study
  Country: CA (occurrence: CA)
  Receive Date: 20130923
  Receipt Date: 20131119
  Transmission Date: 20140711
  Serious: Yes (Other)
  Sender: FDA-Public Use
  Company Number: PHHY2012CA051800

PATIENT
  Age: 66 Year
  Sex: Male

DRUGS (2)
  1. SANDOSTATIN LAR [Suspect]
     Indication: CARCINOID TUMOUR OF THE SMALL BOWEL
     Dosage: 20 MG, QMO
     Route: 030
     Dates: start: 20071120
  2. SANDOSTATIN LAR [Suspect]
     Dosage: 20 MG, EVERY 4 WEEKS
     Route: 030

REACTIONS (7)
  - Angina pectoris [Not Recovered/Not Resolved]
  - Fall [Unknown]
  - Oedema peripheral [Recovering/Resolving]
  - Pain in extremity [Unknown]
  - Syncope [Unknown]
  - Muscular weakness [Unknown]
  - Dizziness [Unknown]
